FAERS Safety Report 15664898 (Version 4)
Quarter: 2019Q1

REPORT INFORMATION
  Report Type: Spontaneous
  Country: GR (occurrence: GR)
  Receive Date: 20181128
  Receipt Date: 20190103
  Transmission Date: 20190417
  Serious: Yes (Other)
  Sender: FDA-Public Use
  Company Number: GR-PFIZER INC-2018483924

PATIENT
  Age: 75 Year
  Sex: Male

DRUGS (12)
  1. CARVEDILOL. [Suspect]
     Active Substance: CARVEDILOL
     Indication: DYSLIPIDAEMIA
  2. ATORVASTATIN CALCIUM. [Suspect]
     Active Substance: ATORVASTATIN CALCIUM
     Indication: DYSLIPIDAEMIA
  3. FUROSEMIDE. [Suspect]
     Active Substance: FUROSEMIDE
     Indication: ATRIAL FIBRILLATION
     Dosage: 40 MG, 1X/DAY(HALF)
     Route: 065
  4. AMIODARONE HCL [Suspect]
     Active Substance: AMIODARONE HYDROCHLORIDE
     Indication: HYPERTENSION
  5. CARVEDILOL. [Suspect]
     Active Substance: CARVEDILOL
     Indication: ATRIAL FIBRILLATION
     Dosage: 6.25 MG, 1X/DAY
     Route: 065
  6. AMIODARONE HCL [Suspect]
     Active Substance: AMIODARONE HYDROCHLORIDE
     Indication: DYSLIPIDAEMIA
  7. ATORVASTATIN CALCIUM. [Suspect]
     Active Substance: ATORVASTATIN CALCIUM
     Indication: HYPERTENSION
  8. FUROSEMIDE. [Suspect]
     Active Substance: FUROSEMIDE
     Indication: DYSLIPIDAEMIA
  9. FUROSEMIDE. [Suspect]
     Active Substance: FUROSEMIDE
     Indication: HYPERTENSION
     Dosage: 200 MG, UNK (TOTAL, INTERMITTENT BOLUSES
     Route: 042
  10. CARVEDILOL. [Suspect]
     Active Substance: CARVEDILOL
     Indication: HYPERTENSION
  11. AMIODARONE HCL [Suspect]
     Active Substance: AMIODARONE HYDROCHLORIDE
     Indication: ATRIAL FIBRILLATION
     Dosage: UNK (HALF QD)
     Route: 065
  12. ATORVASTATIN CALCIUM. [Suspect]
     Active Substance: ATORVASTATIN CALCIUM
     Indication: ATRIAL FIBRILLATION
     Dosage: 10 MG, 1X/DAY
     Route: 065

REACTIONS (10)
  - Oedema [Unknown]
  - Tachypnoea [Unknown]
  - Pallor [Unknown]
  - Rales [Unknown]
  - Peripheral coldness [Unknown]
  - Hyperhidrosis [Unknown]
  - Drug ineffective [Unknown]
  - Cardiac failure chronic [Unknown]
  - Jugular vein distension [Unknown]
  - Blood pressure decreased [Unknown]
